FAERS Safety Report 4324504-5 (Version None)
Quarter: 2004Q1

REPORT INFORMATION
  Report Type: 
  Country: None (occurrence: None)
  Receive Date: 20040326
  Receipt Date: 20040223
  Transmission Date: 20041129
  Serious: No
  Sender: FDA-Public Use
  Company Number: US-GLAXOSMITHKLINE-A0499422A

PATIENT
  Age: 68 Year
  Sex: Female

DRUGS (1)
  1. ADVAIR DISKUS 100/50 [Suspect]
     Dosage: 1BLS TWICE PER DAY
     Route: 055
     Dates: start: 20040220, end: 20040220

REACTIONS (3)
  - CHEST DISCOMFORT [None]
  - DYSPNOEA [None]
  - IRRITABILITY [None]
